FAERS Safety Report 13625210 (Version 1)
Quarter: 2017Q2

REPORT INFORMATION
  Report Type: Spontaneous
  Country: US (occurrence: US)
  Receive Date: 20170607
  Receipt Date: 20170607
  Transmission Date: 20170830
  Serious: No
  Sender: FDA-Public Use
  Company Number: US-JNJFOC-20170602954

PATIENT
  Age: 79 Year
  Sex: Female
  Weight: 71.22 kg

DRUGS (2)
  1. RISPERDAL [Suspect]
     Active Substance: RISPERIDONE
     Indication: AGITATION
     Route: 048
     Dates: start: 20170506
  2. CARVEDILOL. [Concomitant]
     Active Substance: CARVEDILOL
     Indication: CARDIAC FAILURE CONGESTIVE
     Route: 065
     Dates: start: 2016

REACTIONS (4)
  - Hypersomnia [Unknown]
  - Peripheral swelling [Recovered/Resolved]
  - Unevaluable event [Unknown]
  - Peripheral coldness [Unknown]

NARRATIVE: CASE EVENT DATE: 201705
